FAERS Safety Report 14383143 (Version 1)
Quarter: 2018Q1

REPORT INFORMATION
  Report Type: Spontaneous
  Country: FR (occurrence: FR)
  Receive Date: 20180115
  Receipt Date: 20180115
  Transmission Date: 20180509
  Serious: Yes (Hospitalization)
  Sender: FDA-Public Use
  Company Number: FR-CIPLA LTD.-2018FR00154

PATIENT

DRUGS (6)
  1. INNOHEP [Concomitant]
     Active Substance: TINZAPARIN SODIUM
     Indication: ANTICOAGULANT THERAPY
     Dosage: UNK
     Route: 058
     Dates: start: 20170306
  2. PACLITAXEL. [Suspect]
     Active Substance: PACLITAXEL
     Indication: ADENOCARCINOMA
     Dosage: 80 MG/M2, UNK
     Route: 042
     Dates: start: 20161108
  3. FENOFIBRATE. [Concomitant]
     Active Substance: FENOFIBRATE
     Indication: DYSLIPIDAEMIA
     Dosage: 145 MG, UNK
     Route: 048
     Dates: start: 1999
  4. CARBOPLATIN. [Suspect]
     Active Substance: CARBOPLATIN
     Indication: ADENOCARCINOMA
     Dosage: UNK
     Route: 042
     Dates: start: 20161108
  5. AVASTIN [Suspect]
     Active Substance: BEVACIZUMAB
     Indication: ADENOCARCINOMA
     Dosage: 7.5 MG/KG, UNK
     Route: 042
     Dates: start: 20170327, end: 20170515
  6. KARDEGI C 75 MG, POUDRE POUR SOLUT ION BUVABLE ENSACHET -DOSE [Concomitant]
     Indication: ISCHAEMIC STROKE
     Dosage: 1 DF, DAILY
     Route: 048
     Dates: start: 1999

REACTIONS (1)
  - Catheter site thrombosis [Recovered/Resolved]

NARRATIVE: CASE EVENT DATE: 20170412
